FAERS Safety Report 5810633-3 (Version None)
Quarter: 2008Q3

REPORT INFORMATION
  Report Type: 
  Country: None (occurrence: None)
  Receive Date: 20080710
  Receipt Date: 20080626
  Transmission Date: 20090109
  Serious: Yes (Other)
  Sender: FDA-Public Use
  Company Number: MC200800286

PATIENT
  Age: 59 Year
  Sex: Male
  Weight: 94 kg

DRUGS (4)
  1. ANGIOMAX [Suspect]
     Indication: PERCUTANEOUS CORONARY INTERVENTION
     Dosage: 14 ML, BOLUS, INTRAVENOUS, 33 ML, HR, INTRAVENOUS
     Route: 042
     Dates: start: 20080626, end: 20080626
  2. ANGIOMAX [Suspect]
     Indication: PERCUTANEOUS CORONARY INTERVENTION
     Dosage: 14 ML, BOLUS, INTRAVENOUS, 33 ML, HR, INTRAVENOUS
     Route: 042
     Dates: start: 20080626, end: 20080626
  3. PLAVIX [Suspect]
     Dosage: 600 MG, ORAL
     Route: 048
     Dates: start: 20080626
  4. ASPIRIN [Concomitant]

REACTIONS (2)
  - ATRIAL FIBRILLATION [None]
  - STENT OCCLUSION [None]
